FAERS Safety Report 22293619 (Version 1)
Quarter: 2023Q2

REPORT INFORMATION
  Report Type: Spontaneous
  Country: US (occurrence: US)
  Receive Date: 20230508
  Receipt Date: 20230508
  Transmission Date: 20230722
  Serious: Yes (Other)
  Sender: FDA-Public Use
  Company Number: US-BRISTOL-MYERS SQUIBB COMPANY-2023-062297

PATIENT
  Age: 55 Year
  Sex: Male
  Weight: 176.45 kg

DRUGS (1)
  1. POMALYST [Suspect]
     Active Substance: POMALIDOMIDE
     Indication: Plasma cell myeloma
     Dosage: 21D ON 7D OFF
     Route: 048

REACTIONS (7)
  - Urine abnormality [Unknown]
  - Diarrhoea [Unknown]
  - Asthenia [Unknown]
  - Fluid retention [Unknown]
  - Swelling [Unknown]
  - Chromaturia [Unknown]
  - Urinary retention [Unknown]
